FAERS Safety Report 24709025 (Version 3)
Quarter: 2025Q1

REPORT INFORMATION
  Report Type: Spontaneous
  Country: US (occurrence: US)
  Receive Date: 20241208
  Receipt Date: 20250101
  Transmission Date: 20250408
  Serious: Yes (Hospitalization, Disabling)
  Sender: SANOFI AVENTIS
  Company Number: US-SA-2024SA297300

PATIENT
  Age: 65 Year
  Sex: Female

DRUGS (1)
  1. DUPIXENT [Suspect]
     Active Substance: DUPILUMAB
     Indication: Dermatitis atopic
     Dosage: 300 MG, QOW
     Dates: start: 202410

REACTIONS (4)
  - Walking disability [Unknown]
  - Limb discomfort [Unknown]
  - Joint swelling [Unknown]
  - Arthralgia [Unknown]

NARRATIVE: CASE EVENT DATE: 20240101
